FAERS Safety Report 12106181 (Version 1)
Quarter: 2016Q1

REPORT INFORMATION
  Report Type: Spontaneous
  Country: IL (occurrence: IL)
  Receive Date: 20160223
  Receipt Date: 20160223
  Transmission Date: 20160526
  Serious: Yes (Death, Life-Threatening, Hospitalization, Other)
  Sender: FDA-Public Use
  Company Number: IL-ASTRAZENECA-2016SE16002

PATIENT
  Age: 65 Year
  Sex: Female

DRUGS (4)
  1. METFORMIN [Concomitant]
     Active Substance: METFORMIN HYDROCHLORIDE
  2. FORXIGA [Suspect]
     Active Substance: DAPAGLIFLOZIN
     Route: 048
     Dates: start: 20151012
  3. LANTUS [Concomitant]
     Active Substance: INSULIN GLARGINE
  4. NOVORAPIDE [Concomitant]

REACTIONS (5)
  - Death [Fatal]
  - Diabetic ketoacidosis [Unknown]
  - Hypoglycaemia [Unknown]
  - Coma [Fatal]
  - Drug dose omission [Unknown]
